FAERS Safety Report 13526701 (Version 1)
Quarter: 2017Q2

REPORT INFORMATION
  Report Type: Report from Study
  Country: BR (occurrence: BR)
  Receive Date: 20170509
  Receipt Date: 20170509
  Transmission Date: 20170830
  Serious: Yes (Other)
  Sender: FDA-Public Use
  Company Number: PHHY2017BR067310

PATIENT
  Sex: Female
  Weight: 53 kg

DRUGS (1)
  1. GILENYA [Suspect]
     Active Substance: FINGOLIMOD HYDROCHLORIDE
     Indication: MULTIPLE SCLEROSIS
     Dosage: 0.5 MG, QD
     Route: 048
     Dates: start: 201408, end: 201605

REACTIONS (5)
  - Spinal deformity [Not Recovered/Not Resolved]
  - Blindness transient [Recovering/Resolving]
  - Hand deformity [Recovering/Resolving]
  - Malaise [Unknown]
  - Pain [Unknown]
